FAERS Safety Report 7374742-2 (Version None)
Quarter: 2011Q1

REPORT INFORMATION
  Report Type: 
  Country: None (occurrence: None)
  Receive Date: 20110325
  Receipt Date: 20100924
  Transmission Date: 20110831
  Serious: No
  Sender: FDA-Public Use
  Company Number: US-MYLANLABS-2010S1017783

PATIENT
  Age: 90 Year
  Sex: Female

DRUGS (2)
  1. BUSPIRONE HCL [Concomitant]
  2. FENTANYL-100 [Suspect]
     Dosage: Q 72 HOURS
     Route: 062
     Dates: start: 20100301

REACTIONS (2)
  - DRUG INEFFECTIVE [None]
  - DRUG WITHDRAWAL SYNDROME [None]
